FAERS Safety Report 6466098-4 (Version None)
Quarter: 2009Q4

REPORT INFORMATION
  Report Type: 
  Country: None (occurrence: None)
  Receive Date: 20091201
  Receipt Date: 20091201
  Transmission Date: 20100525
  Serious: No
  Sender: FDA-Public Use
  Company Number: None

PATIENT
  Age: 74 Year
  Sex: Male
  Weight: 77.1115 kg

DRUGS (1)
  1. ADVAIR DISKUS 100/50 [Suspect]
     Dosage: 2 PUFFS BY MOUTH DAILY
     Route: 048
     Dates: start: 20010101, end: 20090901

REACTIONS (1)
  - ORAL CANDIDIASIS [None]
